FAERS Safety Report 5151142-7 (Version None)
Quarter: 2006Q4

REPORT INFORMATION
  Report Type: 
  Country: None (occurrence: None)
  Receive Date: 20061113
  Receipt Date: 20061113
  Transmission Date: 20070319
  Serious: Yes (Hospitalization)
  Sender: FDA-Public Use
  Company Number: None

PATIENT
  Age: 50 Year
  Sex: Male
  Weight: 103 kg

DRUGS (4)
  1. EFFEXOR XR [Suspect]
     Indication: DEPRESSION
     Dosage: 75 MG  DAILY  PO
     Route: 048
     Dates: start: 20061010, end: 20061023
  2. GABAPENTIN [Concomitant]
  3. OXANDROLONE [Concomitant]
  4. SIMVASTATIN [Concomitant]

REACTIONS (2)
  - ENCEPHALOPATHY [None]
  - HEPATOCELLULAR DAMAGE [None]
